FAERS Safety Report 7222600-6 (Version None)
Quarter: 2011Q1

REPORT INFORMATION
  Report Type: 
  Country: None (occurrence: None)
  Receive Date: 20110112
  Receipt Date: 20110104
  Transmission Date: 20110831
  Serious: Yes (Death, Hospitalization)
  Sender: FDA-Public Use
  Company Number: US-GILEAD-2010-0034375

PATIENT
  Sex: Female
  Weight: 80.812 kg

DRUGS (22)
  1. DILTIAZEM [Concomitant]
     Indication: HYPERTENSION
  2. ALBUTEROL SULFATE [Concomitant]
     Indication: CHRONIC OBSTRUCTIVE PULMONARY DISEASE
  3. ZOLPIDEM [Concomitant]
  4. LETAIRIS [Suspect]
     Indication: PULMONARY ARTERIAL HYPERTENSION
     Route: 048
     Dates: start: 20100831, end: 20101211
  5. POTASSIUM CHLORIDE [Concomitant]
  6. OMEPRAZOLE [Concomitant]
     Indication: GASTROOESOPHAGEAL REFLUX DISEASE
  7. PREDNISONE [Concomitant]
  8. FERROUS SULFATE [Concomitant]
     Indication: ANAEMIA
  9. SIMVASTATIN [Concomitant]
     Indication: HYPERLIPIDAEMIA
  10. SYMBICORT [Concomitant]
     Indication: CHRONIC OBSTRUCTIVE PULMONARY DISEASE
  11. XALATAN [Concomitant]
  12. CALCIUM [Concomitant]
  13. LEVOTHYROXINE [Concomitant]
     Indication: HYPOTHYROIDISM
  14. ALENDRONATE [Concomitant]
     Indication: OSTEOPOROSIS
  15. DIGOXIN [Concomitant]
  16. FLONASE [Concomitant]
  17. FLUOXETINE [Concomitant]
     Indication: DEPRESSION
  18. SPIRIVA [Concomitant]
     Indication: CHRONIC OBSTRUCTIVE PULMONARY DISEASE
  19. CLARITIN [Concomitant]
  20. LASIX [Concomitant]
     Indication: CARDIAC FAILURE CONGESTIVE
  21. AMLODIPINE [Concomitant]
     Indication: HYPERTENSION
  22. MIRAPEX [Concomitant]

REACTIONS (7)
  - RENAL FAILURE [None]
  - CARDIAC FAILURE CONGESTIVE [None]
  - OEDEMA PERIPHERAL [None]
  - MALAISE [None]
  - DYSPNOEA [None]
  - PULMONARY HYPERTENSION [None]
  - PNEUMONIA [None]
